FAERS Safety Report 7725336-8 (Version None)
Quarter: 2011Q3

REPORT INFORMATION
  Report Type: 
  Country: None (occurrence: None)
  Receive Date: 20110829
  Receipt Date: 20110811
  Transmission Date: 20111222
  Serious: Yes (Disabling)
  Sender: FDA-Public Use
  Company Number: 1011324

PATIENT
  Age: 33 Year
  Sex: Female

DRUGS (2)
  1. EPIRUBICIN HYDROCHLORIDE [Suspect]
     Indication: BREAST CANCER FEMALE
     Dates: start: 20091019
  2. CYCLOPHOSPHAMIDE [Concomitant]

REACTIONS (18)
  - CANDIDIASIS [None]
  - MOTOR DYSFUNCTION [None]
  - GAIT DISTURBANCE [None]
  - COORDINATION ABNORMAL [None]
  - PARAESTHESIA [None]
  - BURNING SENSATION [None]
  - SENSORY DISTURBANCE [None]
  - PAIN IN EXTREMITY [None]
  - NEUROTOXICITY [None]
  - NECK PAIN [None]
  - HYPOREFLEXIA [None]
  - DIARRHOEA [None]
  - ARTHRALGIA [None]
  - MYALGIA [None]
  - PARAPLEGIA [None]
  - NAUSEA [None]
  - FATIGUE [None]
  - BACK PAIN [None]
